FAERS Safety Report 8228573-1 (Version None)
Quarter: 2012Q1

REPORT INFORMATION
  Report Type: 
  Country: None (occurrence: None)
  Receive Date: 20120322
  Receipt Date: 20110404
  Transmission Date: 20120608
  Serious: No
  Sender: FDA-Public Use
  Company Number: US-BRISTOL-MYERS SQUIBB COMPANY-15653793

PATIENT
  Sex: Male

DRUGS (10)
  1. IRINOTECAN HYDROCHLORIDE [Concomitant]
     Route: 042
     Dates: start: 20110329
  2. ERBITUX [Suspect]
     Route: 042
     Dates: start: 20110329
  3. ALOXI [Concomitant]
     Dates: start: 20110228
  4. AVASTIN [Concomitant]
     Dates: start: 20110228
  5. LEUCOVORIN CALCIUM [Concomitant]
     Dates: start: 20110228
  6. FLUOROURACIL [Concomitant]
     Dates: start: 20110228
  7. NEULASTA [Concomitant]
     Dates: start: 20110302
  8. DECADRON [Concomitant]
     Route: 042
     Dates: start: 20110228
  9. CAMPTOSAR [Concomitant]
     Dates: start: 20110228
  10. ATROPINE [Concomitant]
     Dates: start: 20110228

REACTIONS (3)
  - PYREXIA [None]
  - MUSCULOSKELETAL PAIN [None]
  - HEADACHE [None]
